FAERS Safety Report 5559914-1 (Version None)
Quarter: 2007Q4

REPORT INFORMATION
  Report Type: 
  Country: None (occurrence: None)
  Receive Date: 20071214
  Receipt Date: 20071107
  Transmission Date: 20080405
  Serious: No
  Sender: FDA-Public Use
  Company Number: US-ABBOTT-07P-163-0421482-00

PATIENT
  Sex: Female
  Weight: 136.36 kg

DRUGS (4)
  1. HUMIRA [Suspect]
     Indication: CROHN'S DISEASE
     Route: 058
     Dates: start: 20070501
  2. NIZATIDINE [Concomitant]
     Indication: GASTRIC DISORDER
  3. ENALAPRIL [Concomitant]
     Indication: HYPERTENSION
  4. SERTRALINE [Concomitant]
     Indication: DEPRESSION

REACTIONS (7)
  - CELLULITIS [None]
  - OEDEMA [None]
  - OEDEMA PERIPHERAL [None]
  - RASH PRURITIC [None]
  - SCAR [None]
  - WOUND [None]
  - WOUND SECRETION [None]
